FAERS Safety Report 4575813-6 (Version None)
Quarter: 2005Q1

REPORT INFORMATION
  Report Type: 
  Country: None (occurrence: None)
  Receive Date: 20050204
  Receipt Date: 20050124
  Transmission Date: 20050727
  Serious: Yes (Life-Threatening, Hospitalization)
  Sender: FDA-Public Use
  Company Number: 2004116962

PATIENT
  Sex: Male
  Weight: 51.5 kg

DRUGS (10)
  1. CABERGOLINE [Suspect]
     Indication: DEMENTIA
     Dosage: SEE  IMAGE , ORAL
     Route: 048
     Dates: start: 20041212, end: 20041214
  2. CABERGOLINE [Suspect]
     Indication: DEMENTIA
     Dosage: SEE  IMAGE , ORAL
     Route: 048
     Dates: start: 20040801
  3. CABERGOLINE [Suspect]
     Indication: DEMENTIA
     Dosage: SEE  IMAGE , ORAL
     Route: 048
     Dates: start: 20040922
  4. DROXIDOPA (DROXIDOPA) [Suspect]
     Indication: DEMENTIA
     Dosage: 100 MG, ORAL
     Route: 048
     Dates: start: 20041125
  5. PAROXETINE HCL [Suspect]
     Indication: ANXIETY
     Dosage: 10 MG (10 MG), ORAL
     Route: 048
     Dates: start: 20041126, end: 20041214
  6. ZOPICLONE (ZOPICLONE) [Concomitant]
  7. SUCRALFATE [Concomitant]
  8. MAGNESIUM OXIDE (MAGNESIUM OXIDE) [Concomitant]
  9. SODIUM PICOSULATE (SODIUM PICOSULFATE) [Concomitant]
  10. DONEPEZIL HCL [Concomitant]

REACTIONS (6)
  - AGRANULOCYTOSIS [None]
  - BLOOD PRESSURE DECREASED [None]
  - DISEASE PROGRESSION [None]
  - DRUG INEFFECTIVE [None]
  - MENTAL DISORDER [None]
  - SEPSIS [None]
